FAERS Safety Report 25738488 (Version 3)
Quarter: 2025Q4

REPORT INFORMATION
  Report Type: Spontaneous
  Country: US (occurrence: US)
  Receive Date: 20250829
  Receipt Date: 20251006
  Transmission Date: 20260118
  Serious: Yes (Other)
  Sender: GLAXOSMITHKLINE
  Company Number: US-GSK-US2025105124

PATIENT
  Age: 67 Year
  Sex: Female

DRUGS (2)
  1. VALTREX [Suspect]
     Active Substance: VALACYCLOVIR HYDROCHLORIDE
     Indication: Herpes zoster disseminated
     Dosage: 1 DF, QID
  2. VALACYCLOVIR [Suspect]
     Active Substance: VALACYCLOVIR HYDROCHLORIDE
     Indication: Herpes zoster
     Dosage: 1 DF, QID

REACTIONS (9)
  - Meningitis [Unknown]
  - Encephalitis [Unknown]
  - Illness [Unknown]
  - Pruritus [Unknown]
  - Skin lesion [Unknown]
  - Herpes zoster disseminated [Unknown]
  - Disease recurrence [Unknown]
  - Product dose omission issue [Unknown]
  - Overdose [Unknown]

NARRATIVE: CASE EVENT DATE: 20250814
